FAERS Safety Report 6626501-3 (Version None)
Quarter: 2010Q1

REPORT INFORMATION
  Report Type: 
  Country: None (occurrence: None)
  Receive Date: 20100309
  Receipt Date: 20100309
  Transmission Date: 20100710
  Serious: Yes (Hospitalization, Other)
  Sender: FDA-Public Use
  Company Number: None

PATIENT
  Age: 69 Year
  Sex: Female
  Weight: 53.0709 kg

DRUGS (2)
  1. TICLOPIDINE HCL [Suspect]
     Indication: CEREBROVASCULAR ACCIDENT
     Dosage: 250MG TWICE A DAY BUCCAL
     Route: 002
     Dates: start: 20041129, end: 20091124
  2. TICLOPIDINE HCL [Suspect]
     Indication: STENT PLACEMENT
     Dosage: 250MG TWICE A DAY BUCCAL
     Route: 002
     Dates: start: 20041129, end: 20091124

REACTIONS (3)
  - CARDIAC FAILURE [None]
  - COLITIS COLLAGENOUS [None]
  - DEHYDRATION [None]
